FAERS Safety Report 21649381 (Version 3)
Quarter: 2022Q4

REPORT INFORMATION
  Report Type: Report from Study
  Country: DE (occurrence: DE)
  Receive Date: 20221128
  Receipt Date: 20221220
  Transmission Date: 20230113
  Serious: Yes (Other)
  Sender: FDA-Public Use
  Company Number: DE-ASTELLAS-2022US042059

PATIENT
  Age: 60 Year
  Sex: Male
  Weight: 108 kg

DRUGS (12)
  1. REGADENOSON [Suspect]
     Active Substance: REGADENOSON
     Indication: Scan myocardial perfusion
     Dosage: 5 ML, SINGLE (ONCE), DURATION: 10 SEC
     Route: 042
  2. REGADENOSON [Suspect]
     Active Substance: REGADENOSON
     Indication: Scan myocardial perfusion
     Dosage: 5 ML, SINGLE (ONCE), DURATION: 10 SEC
     Route: 042
  3. REGADENOSON [Suspect]
     Active Substance: REGADENOSON
     Indication: Scan myocardial perfusion
     Dosage: 5 ML, SINGLE (ONCE), DURATION: 10 SEC
     Route: 042
  4. REGADENOSON [Suspect]
     Active Substance: REGADENOSON
     Indication: Scan myocardial perfusion
     Dosage: 5 ML, SINGLE (ONCE), DURATION: 10 SEC
     Route: 042
  5. REGADENOSON [Suspect]
     Active Substance: REGADENOSON
     Indication: Myocardial ischaemia
  6. REGADENOSON [Suspect]
     Active Substance: REGADENOSON
     Indication: Myocardial ischaemia
  7. REGADENOSON [Suspect]
     Active Substance: REGADENOSON
     Indication: Myocardial ischaemia
  8. REGADENOSON [Suspect]
     Active Substance: REGADENOSON
     Indication: Myocardial ischaemia
  9. GADOBUTROL [Concomitant]
     Active Substance: GADOBUTROL
     Indication: Scan myocardial perfusion
     Route: 065
  10. GADOBUTROL [Concomitant]
     Active Substance: GADOBUTROL
     Indication: Magnetic resonance imaging
     Route: 065
  11. GADOBUTROL [Concomitant]
     Active Substance: GADOBUTROL
     Indication: Myocardial ischaemia
  12. SALINE [Concomitant]
     Active Substance: SODIUM CHLORIDE
     Indication: Product used for unknown indication
     Dosage: 10 ML (BOLUS), UNKNOWN FREQ.[30-60 SEC FOLLOWING REGADENOSON ADMINISTRATION]
     Route: 065

REACTIONS (2)
  - Intestinal angina [Recovered/Resolved]
  - Angina pectoris [Recovered/Resolved]
